FAERS Safety Report 4693039-2 (Version None)
Quarter: 2005Q2

REPORT INFORMATION
  Report Type: 
  Country: None (occurrence: None)
  Receive Date: 20050617
  Receipt Date: 20050610
  Transmission Date: 20051028
  Serious: Yes (Other)
  Sender: FDA-Public Use
  Company Number: PHEH2005US06613

PATIENT
  Sex: Male

DRUGS (1)
  1. LOTREL [Suspect]
     Route: 048

REACTIONS (3)
  - BLOOD POTASSIUM DECREASED [None]
  - NEPHROLITHIASIS [None]
  - RENAL PAIN [None]
